FAERS Safety Report 4892572-8 (Version None)
Quarter: 2006Q1

REPORT INFORMATION
  Report Type: 
  Country: None (occurrence: None)
  Receive Date: 20060126
  Receipt Date: 20051221
  Transmission Date: 20060701
  Serious: Yes (Other)
  Sender: FDA-Public Use
  Company Number: PHNU2005DE04237

PATIENT
  Sex: Female
  Weight: 75 kg

DRUGS (8)
  1. ZOMETA [Suspect]
     Indication: BREAST CANCER METASTATIC
     Dosage: 4 MG, QMO
     Route: 042
     Dates: start: 20040501
  2. TAMOXIFEN CITRATE [Concomitant]
     Indication: BREAST CANCER FEMALE
     Dosage: 20 MG, QD
     Route: 048
     Dates: start: 20040501, end: 20051101
  3. DURAGESIC-100 [Concomitant]
     Indication: BONE PAIN
     Dosage: 125 UG, TID
     Route: 062
     Dates: start: 20040501
  4. IBUPROFEN [Concomitant]
     Indication: BONE PAIN
     Dosage: 400 MG, BID
     Route: 048
     Dates: start: 20050601
  5. SAROTEN [Concomitant]
     Indication: DEPRESSION
     Dosage: 25MG-25MG-50MG/DAY
     Route: 065
     Dates: start: 20040101
  6. NOVALGIN [Concomitant]
     Indication: BONE PAIN
     Dosage: 40 DRP, TID
     Route: 048
     Dates: start: 20050601
  7. VOLTAREN [Concomitant]
     Indication: BONE PAIN
     Dosage: 50 MG, QD
     Route: 054
     Dates: start: 20040501
  8. PASPERTIN [Concomitant]
     Indication: CONSTIPATION
     Dosage: 20 DRP, TID
     Route: 048
     Dates: start: 20040501

REACTIONS (3)
  - GINGIVAL DISORDER [None]
  - GINGIVAL PAIN [None]
  - OSTEONECROSIS [None]
